FAERS Safety Report 7885277-2 (Version None)
Quarter: 2011Q4

REPORT INFORMATION
  Report Type: 
  Country: None (occurrence: None)
  Receive Date: 20111102
  Receipt Date: 20111025
  Transmission Date: 20120403
  Serious: Yes (Hospitalization)
  Sender: FDA-Public Use
  Company Number: CHPA2011US14879

PATIENT
  Age: 55 Year
  Sex: Female

DRUGS (1)
  1. TERBINAFINE HCL [Suspect]
     Indication: ONYCHOMYCOSIS
     Dosage: 2 DF, BID
     Route: 061
     Dates: start: 20110901

REACTIONS (11)
  - SENSORY LOSS [None]
  - PAIN OF SKIN [None]
  - PERIPHERAL COLDNESS [None]
  - CONFUSIONAL STATE [None]
  - HYPOAESTHESIA [None]
  - OFF LABEL USE [None]
  - MEMORY IMPAIRMENT [None]
  - GAIT DISTURBANCE [None]
  - FALL [None]
  - INCORRECT DRUG ADMINISTRATION DURATION [None]
  - WRONG TECHNIQUE IN DRUG USAGE PROCESS [None]
